FAERS Safety Report 4740550-1 (Version None)
Quarter: 2005Q3

REPORT INFORMATION
  Report Type: 
  Country: None (occurrence: None)
  Receive Date: 20050801
  Receipt Date: 20040825
  Transmission Date: 20060218
  Serious: No
  Sender: FDA-Public Use
  Company Number: 208663

PATIENT
  Age: 85 Year
  Sex: Female
  Weight: 56 kg

DRUGS (12)
  1. RITUXAN [Suspect]
     Indication: LYMPHOMA
     Dosage: 600 MG, Q3W, INTRAVENOUS
     Route: 042
     Dates: start: 20040710, end: 20040802
  2. CYTOXAN [Concomitant]
  3. VINCRISTINE [Concomitant]
  4. PREDNISONE [Concomitant]
  5. PERCOCET - 5 (ACETAMINOPHEN, OXYCODONE HYDROCHLORIDE) [Concomitant]
  6. PROZAC [Concomitant]
  7. OXYCONTIN [Concomitant]
  8. ALLOPURINOL [Concomitant]
  9. SYNTHROID [Concomitant]
  10. ATIVAN [Concomitant]
  11. AMBIEN [Concomitant]
  12. ACETAMINOPHEN [Concomitant]

REACTIONS (1)
  - INTERSTITIAL LUNG DISEASE [None]
